FAERS Safety Report 23909268 (Version 1)
Quarter: 2024Q2

REPORT INFORMATION
  Report Type: Spontaneous
  Country: US (occurrence: US)
  Receive Date: 20240528
  Receipt Date: 20240528
  Transmission Date: 20240716
  Serious: No
  Sender: FDA-Public Use
  Company Number: US-AMNEAL PHARMACEUTICALS-2024-AMRX-00386

PATIENT
  Age: 66 Year
  Sex: Female
  Weight: 57.596 kg

DRUGS (1)
  1. BUPRENORPHINE TRANSDERMAL SYSTEM [Suspect]
     Active Substance: BUPRENORPHINE
     Indication: Product used for unknown indication
     Dosage: 15MCG/HOUR
     Route: 062
     Dates: start: 2023

REACTIONS (4)
  - Application site vesicles [Not Recovered/Not Resolved]
  - Application site rash [Not Recovered/Not Resolved]
  - Application site pruritus [Not Recovered/Not Resolved]
  - Application site burn [Not Recovered/Not Resolved]

NARRATIVE: CASE EVENT DATE: 20240130
